FAERS Safety Report 5588132-6 (Version None)
Quarter: 2008Q1

REPORT INFORMATION
  Report Type: 
  Country: None (occurrence: None)
  Receive Date: 20080111
  Receipt Date: 20080103
  Transmission Date: 20080703
  Serious: No
  Sender: FDA-Public Use
  Company Number: US-JNJFOC-20080100949

PATIENT
  Sex: Female

DRUGS (5)
  1. INVEGA [Suspect]
     Indication: POST-TRAUMATIC STRESS DISORDER
  2. INVEGA [Suspect]
     Indication: BIPOLAR DISORDER
  3. INVEGA [Suspect]
     Indication: ANXIETY
  4. SEROQUEL [Concomitant]
     Indication: PSYCHOTIC DISORDER
  5. SEROQUEL [Concomitant]
     Indication: BIPOLAR DISORDER

REACTIONS (3)
  - HEART RATE IRREGULAR [None]
  - TACHYCARDIA [None]
  - TREMOR [None]
